FAERS Safety Report 17756094 (Version 1)
Quarter: 2020Q2

REPORT INFORMATION
  Report Type: Spontaneous
  Country: BR (occurrence: BR)
  Receive Date: 20200507
  Receipt Date: 20200507
  Transmission Date: 20200714
  Serious: Yes (Other)
  Sender: FDA-Public Use
  Company Number: BR-HORIZON-VIM-0057-2020

PATIENT
  Age: 80 Year
  Sex: Male

DRUGS (8)
  1. VIMOVO [Suspect]
     Active Substance: ESOMEPRAZOLE MAGNESIUM\NAPROXEN
     Indication: PAIN IN EXTREMITY
     Route: 048
     Dates: start: 20190917
  2. CARVEDILOL. [Concomitant]
     Active Substance: CARVEDILOL
  3. VITAMIN D [Concomitant]
     Active Substance: VITAMIN D NOS
  4. AMYTRIL [Concomitant]
     Active Substance: AMITRIPTYLINE HYDROCHLORIDE
     Dosage: 25.0MG UNKNOWN
  5. DOXAZOSIN [Concomitant]
     Active Substance: DOXAZOSIN MESYLATE
     Dosage: 4.0MG UNKNOWN
  6. IVABRADINE [Concomitant]
     Active Substance: IVABRADINE
     Dosage: 7.5MG UNKNOWN
  7. SIMVASTATIN. [Concomitant]
     Active Substance: SIMVASTATIN
  8. GLIFAGE [Concomitant]
     Active Substance: METFORMIN HYDROCHLORIDE
     Indication: DIABETES MELLITUS

REACTIONS (5)
  - Product use issue [Unknown]
  - Product used for unknown indication [Unknown]
  - Psoriasis [Unknown]
  - Off label use [Unknown]
  - Rash [Unknown]

NARRATIVE: CASE EVENT DATE: 20190917
